FAERS Safety Report 5745297-0 (Version None)
Quarter: 2008Q2

REPORT INFORMATION
  Report Type: 
  Country: None (occurrence: None)
  Receive Date: 20080520
  Receipt Date: 20080509
  Transmission Date: 20081010
  Serious: No
  Sender: FDA-Public Use
  Company Number: APP200800378

PATIENT
  Age: 54 Year
  Sex: Female
  Weight: 63.5 kg

DRUGS (1)
  1. HEPARIN SODIUM INJECTION [Suspect]
     Indication: ANTICOAGULANT THERAPY
     Dosage: 80000 USP UNITS, DURING PROCEDURE, INTRAVENOUS
     Route: 042
     Dates: start: 20080502, end: 20080502

REACTIONS (1)
  - DRUG EFFECT DECREASED [None]
